FAERS Safety Report 5044896-1 (Version None)
Quarter: 2006Q3

REPORT INFORMATION
  Report Type: 
  Country: None (occurrence: None)
  Receive Date: 20060707
  Receipt Date: 20060628
  Transmission Date: 20061208
  Serious: Yes (Disabling)
  Sender: FDA-Public Use
  Company Number: 2006UW13669

PATIENT

DRUGS (1)
  1. NESACAINE [Suspect]
     Indication: EPIDURAL ANAESTHESIA
     Route: 008

REACTIONS (4)
  - DELAYED RECOVERY FROM ANAESTHESIA [None]
  - DRUG EFFECT PROLONGED [None]
  - MEDICATION ERROR [None]
  - PARALYSIS [None]
